FAERS Safety Report 5989736-9 (Version None)
Quarter: 2008Q4

REPORT INFORMATION
  Report Type: 
  Country: None (occurrence: None)
  Receive Date: 20081208
  Receipt Date: 20081128
  Transmission Date: 20090506
  Serious: Yes (Hospitalization, Disabling)
  Sender: FDA-Public Use
  Company Number: OSCN-NO-0812L-0644

PATIENT
  Age: 50 Year
  Sex: Male

DRUGS (3)
  1. OMNISCAN [Suspect]
     Indication: DRUG USE FOR UNKNOWN INDICATION
     Dosage: SINGLE DOSE/TWO ADMINISTR
  2. GADOPENTETATE DIMEGLUMINE (MAGNEVIST) [Concomitant]
  3. GADOTERATE MEGLUMINE (DOTAREM) [Concomitant]

REACTIONS (2)
  - NEPHROGENIC SYSTEMIC FIBROSIS [None]
  - WHEELCHAIR USER [None]
